FAERS Safety Report 9524657 (Version 5)
Quarter: 2013Q4

REPORT INFORMATION
  Report Type: Spontaneous
  Country: US (occurrence: US)
  Receive Date: 20130916
  Receipt Date: 20131202
  Transmission Date: 20140711
  Serious: Yes (Other)
  Sender: FDA-Public Use
  Company Number: US-PFIZER INC-2013265552

PATIENT
  Age: 60 Year
  Sex: Female
  Weight: 84.8 kg

DRUGS (1)
  1. LYRICA [Suspect]
     Indication: FIBROMYALGIA
     Dosage: 100 MG, 2X/DAY
     Dates: start: 20130830, end: 2013

REACTIONS (6)
  - Swelling [Unknown]
  - Local swelling [Unknown]
  - Weight increased [Unknown]
  - Dizziness [Unknown]
  - Muscular weakness [Unknown]
  - Memory impairment [Unknown]
